FAERS Safety Report 4843556-7 (Version None)
Quarter: 2005Q4

REPORT INFORMATION
  Report Type: 
  Country: None (occurrence: None)
  Receive Date: 20051125
  Receipt Date: 20051107
  Transmission Date: 20060501
  Serious: Yes (Other)
  Sender: FDA-Public Use
  Company Number: US200511000034

PATIENT
  Age: 40 Year
  Sex: Female

DRUGS (4)
  1. CYMBALTA [Suspect]
     Dosage: 30 MG
     Dates: start: 20051102, end: 20051104
  2. NEURONTIN [Concomitant]
  3. CIPRO [Concomitant]
  4. DIFLUCAN [Concomitant]

REACTIONS (1)
  - CONVULSION [None]
